FAERS Safety Report 9354621 (Version 2)
Quarter: 2013Q3

REPORT INFORMATION
  Report Type: Spontaneous
  Country: US (occurrence: US)
  Receive Date: 20130618
  Receipt Date: 20130723
  Transmission Date: 20140515
  Serious: No
  Sender: FDA-Public Use
  Company Number: US-009507513-1306USA006116

PATIENT
  Age: 48 Year
  Sex: Female
  Weight: 121.1 kg

DRUGS (2)
  1. JANUVIA [Suspect]
     Indication: TYPE 2 DIABETES MELLITUS
     Dosage: 100 MG, QD
     Route: 048
     Dates: start: 20130115, end: 20130523
  2. JANUVIA [Suspect]
     Indication: DRUG INTOLERANCE

REACTIONS (2)
  - Sinusitis [Recovered/Resolved]
  - Sinus headache [Recovered/Resolved]
